FAERS Safety Report 5884432-0 (Version None)
Quarter: 2008Q3

REPORT INFORMATION
  Report Type: 
  Country: None (occurrence: None)
  Receive Date: 20080915
  Receipt Date: 20080903
  Transmission Date: 20090109
  Serious: Yes (Hospitalization)
  Sender: FDA-Public Use
  Company Number: FR-PFIZER INC-2008074374

PATIENT
  Sex: Female

DRUGS (7)
  1. VFEND [Suspect]
     Route: 048
     Dates: start: 20080410, end: 20080414
  2. SULFAMETHOXAZOLE AND TRIMETHOPRIM [Suspect]
     Route: 042
     Dates: start: 20080410, end: 20080414
  3. EVEROLIMUS [Concomitant]
  4. ZELITREX [Concomitant]
  5. OGAST [Concomitant]
  6. FOSAMAX [Concomitant]
  7. POSACONAZOLE [Concomitant]

REACTIONS (3)
  - HALLUCINATION, VISUAL [None]
  - PSYCHOMOTOR HYPERACTIVITY [None]
  - SUICIDE ATTEMPT [None]
